FAERS Safety Report 16422506 (Version 2)
Quarter: 2019Q2

REPORT INFORMATION
  Report Type: Spontaneous
  Country: DE (occurrence: DE)
  Receive Date: 20190612
  Receipt Date: 20190613
  Transmission Date: 20190711
  Serious: Yes (Congenital Anomaly)
  Sender: FDA-Public Use
  Company Number: DE-BAYER-2019-113502

PATIENT
  Sex: Male
  Weight: 3.04 kg

DRUGS (1)
  1. JAYDESS [Suspect]
     Active Substance: LEVONORGESTREL
     Indication: CONTRACEPTION
     Dosage: UNK
     Route: 064
     Dates: start: 20160725

REACTIONS (2)
  - Foetal exposure during pregnancy [None]
  - Cleft palate [None]
